FAERS Safety Report 8516567-8 (Version None)
Quarter: 2012Q3

REPORT INFORMATION
  Report Type: 
  Country: None (occurrence: None)
  Receive Date: 20120718
  Receipt Date: 20120705
  Transmission Date: 20120928
  Serious: Yes (Hospitalization)
  Sender: FDA-Public Use
  Company Number: ZA-ELI_LILLY_AND_COMPANY-ZA201207004609

PATIENT
  Sex: Male

DRUGS (10)
  1. SOMNIL [Concomitant]
     Indication: INSOMNIA
     Dosage: 25 MG, EACH EVENING
     Route: 048
     Dates: start: 20040101
  2. ISOSORBIDE DINITRATE [Concomitant]
     Indication: PROPHYLAXIS
     Dosage: 20 MG, EACH EVENING
     Dates: start: 20040101
  3. HY-PO-TONE [Concomitant]
     Indication: HYPERTENSION
     Dosage: 250 MG, BID
     Route: 048
     Dates: start: 19800101
  4. SIMVASTATIN [Concomitant]
     Indication: BLOOD CHOLESTEROL INCREASED
     Dosage: 40 MG, EACH EVENING
     Route: 048
     Dates: start: 20040101
  5. CARVETREND [Concomitant]
     Indication: HYPERTENSION
     Dosage: 1 DF, EACH MORNING
     Route: 048
     Dates: start: 19800101
  6. ASPIRIN [Concomitant]
     Indication: PROPHYLAXIS
     Dosage: 100 MG, EACH MORNING
     Route: 048
     Dates: start: 20040101
  7. HUMULIN 70/30 [Suspect]
     Indication: TYPE 2 DIABETES MELLITUS
     Dosage: UNK
     Route: 058
     Dates: start: 20040101
  8. METFORMIN HYDROCHLORIDE [Concomitant]
     Indication: DIABETES MELLITUS
     Dosage: 850 MG, EACH EVENING
     Route: 048
     Dates: start: 19800101
  9. SPIRACTIN [Concomitant]
     Indication: HYPERTENSION
     Dosage: 25 MG, EACH MORNING
     Route: 048
     Dates: start: 20040101
  10. LOMANOR [Concomitant]
     Indication: HYPERTENSION
     Dosage: 10 MG, EACH EVENING
     Route: 048
     Dates: start: 20040101

REACTIONS (1)
  - HYPERTENSION [None]
